FAERS Safety Report 8167275-7 (Version None)
Quarter: 2012Q1

REPORT INFORMATION
  Report Type: 
  Country: None (occurrence: None)
  Receive Date: 20120221
  Receipt Date: 20120215
  Transmission Date: 20120608
  Serious: Yes (Hospitalization)
  Sender: FDA-Public Use
  Company Number: 2012MA002093

PATIENT
  Age: 40 Year
  Sex: Male

DRUGS (1)
  1. FEVERALL [Suspect]
     Indication: HEADACHE
     Dosage: 500 MG

REACTIONS (12)
  - ANGINA PECTORIS [None]
  - HEART RATE DECREASED [None]
  - FEAR OF DEATH [None]
  - ERYTHEMA [None]
  - HYPERSENSITIVITY [None]
  - MYOCARDIAL INFARCTION [None]
  - ANXIETY [None]
  - PALLOR [None]
  - AMYLASE INCREASED [None]
  - PRURITUS GENERALISED [None]
  - LIP OEDEMA [None]
  - BLOOD GLUCOSE INCREASED [None]
